FAERS Safety Report 8935326 (Version 2)
Quarter: 2013Q2

REPORT INFORMATION
  Report Type: Report from Study
  Country: NL (occurrence: NL)
  Receive Date: 20121129
  Receipt Date: 20130408
  Transmission Date: 20140414
  Serious: Yes (Other)
  Sender: FDA-Public Use
  Company Number: NL-GENZYME-POMP-1002602

PATIENT
  Sex: 0

DRUGS (1)
  1. MYOZYME [Suspect]
     Indication: GLYCOGEN STORAGE DISEASE TYPE II
     Dosage: 40 MG, QW
     Route: 042
     Dates: start: 19990212

REACTIONS (23)
  - Unresponsive to stimuli [Unknown]
  - Cyanosis [Unknown]
  - Oxygen saturation decreased [Unknown]
  - Bronchospasm [Unknown]
  - Increased bronchial secretion [Unknown]
  - Discomfort [Unknown]
  - Somnolence [Unknown]
  - Vasoconstriction [Unknown]
  - Abdominal pain [Unknown]
  - Rash [Unknown]
  - Hyperhidrosis [Unknown]
  - Tachycardia [Unknown]
  - Pyrexia [Unknown]
  - Flushing [Unknown]
  - Dyspnoea [Unknown]
  - Eye oedema [Unknown]
  - Chills [Unknown]
  - Bradycardia [Unknown]
  - Nausea [Unknown]
  - Vomiting [Unknown]
  - Oedema peripheral [Unknown]
  - Diarrhoea [Unknown]
  - Headache [Unknown]
